FAERS Safety Report 7453998-1 (Version None)
Quarter: 2011Q2

REPORT INFORMATION
  Report Type: 
  Country: None (occurrence: None)
  Receive Date: 20110502
  Receipt Date: 20110429
  Transmission Date: 20111010
  Serious: Yes (Life-Threatening, Hospitalization)
  Sender: FDA-Public Use
  Company Number: DE-ROCHE-771851

PATIENT
  Sex: Female
  Weight: 62 kg

DRUGS (3)
  1. CAPECITABINE [Suspect]
     Indication: BREAST CANCER
     Dosage: DPSE AS PER PROTOCOL, DATE OF LAST DOSE PRIOR TO SAE 21 MARCH 2011, DOSE: 2X1500MG/1 MG
     Route: 065
     Dates: start: 20110201
  2. VINORELBINE [Suspect]
     Indication: BREAST CANCER
     Dosage: DOSE AS PER PROTOCOL, DATE OF LAST DOSE PRIOR TO SAE 16 MARCH 2011
     Route: 042
     Dates: start: 20110201
  3. BEVACIZUMAB [Suspect]
     Indication: BREAST CANCER
     Dosage: DOSE AS PER PROTOCOL, DATE OF LAST DOSE PRIOR TO SAE 16 MARCH 2011
     Route: 065
     Dates: start: 20110223

REACTIONS (1)
  - INTRACRANIAL TUMOUR HAEMORRHAGE [None]
